FAERS Safety Report 19330639 (Version 1)
Quarter: 2021Q2

REPORT INFORMATION
  Report Type: Report from Study
  Country: FR (occurrence: FR)
  Receive Date: 20210528
  Receipt Date: 20210528
  Transmission Date: 20210717
  Serious: Yes (Hospitalization)
  Sender: FDA-Public Use
  Company Number: FR-EVEREST MEDICINES II (HK) LIMITED-2021-0532565

PATIENT
  Sex: Female
  Weight: 72 kg

DRUGS (3)
  1. SACITUZUMAB GOVITECAN. [Suspect]
     Active Substance: SACITUZUMAB GOVITECAN
     Indication: TRANSITIONAL CELL CARCINOMA
     Dosage: 10 MG/KG DAYS 1 AND 8 OF A 21 DAY CYCLE
     Route: 042
     Dates: start: 20210108, end: 20210514
  2. PEMBROLIZUMAB. [Suspect]
     Active Substance: PEMBROLIZUMAB
     Indication: TRANSITIONAL CELL CARCINOMA
     Dosage: 200 MG, FREQUENCY NOT REPORTED
     Route: 042
     Dates: start: 20210108, end: 20210507
  3. INNOHEP [Concomitant]
     Active Substance: TINZAPARIN SODIUM
     Indication: THROMBOSIS
     Dosage: UNK
     Dates: start: 20210108

REACTIONS (2)
  - Diarrhoea haemorrhagic [Unknown]
  - Colitis [Unknown]

NARRATIVE: CASE EVENT DATE: 20210519
